FAERS Safety Report 9356925 (Version 1)
Quarter: 2013Q2

REPORT INFORMATION
  Report Type: Spontaneous
  Country: CA (occurrence: CA)
  Receive Date: 20130620
  Receipt Date: 20130620
  Transmission Date: 20140414
  Serious: Yes (Hospitalization)
  Sender: FDA-Public Use
  Company Number: CA-AMGEN-CANSP2013042191

PATIENT
  Age: 58 Year
  Sex: Female

DRUGS (5)
  1. PROLIA [Suspect]
     Indication: OSTEOPOROSIS
     Dosage: 60 MG, Q6MO
     Route: 058
     Dates: end: 20130506
  2. NEXIUM /01479302/ [Suspect]
  3. RISPERIDONE [Concomitant]
  4. POTASSIUM [Concomitant]
  5. MAXERAN [Concomitant]

REACTIONS (4)
  - Blood phosphorus decreased [Unknown]
  - Hypomagnesaemia [Recovering/Resolving]
  - Irritability [Unknown]
  - Aggression [Unknown]
